FAERS Safety Report 8579607-6 (Version None)
Quarter: 2012Q3

REPORT INFORMATION
  Report Type: 
  Country: None (occurrence: None)
  Receive Date: 20120808
  Receipt Date: 20120731
  Transmission Date: 20120928
  Serious: Yes (Other)
  Sender: FDA-Public Use
  Company Number: JP-VERTEX PHARMACEUTICALS INC.-AE-2012-011488

PATIENT
  Age: 56 Year
  Sex: Male

DRUGS (5)
  1. OXAROL [Concomitant]
     Route: 061
  2. INCIVEK [Suspect]
     Indication: HEPATITIS C
     Route: 048
     Dates: start: 20120614, end: 20120702
  3. PEGINTERFERON ALFA-2B [Concomitant]
     Indication: HEPATITIS C
     Route: 058
     Dates: start: 20120614, end: 20120702
  4. ZOLPIDEM [Concomitant]
     Route: 048
     Dates: start: 20120615, end: 20120623
  5. RIBAVIRIN [Concomitant]
     Indication: HEPATITIS C
     Route: 048
     Dates: start: 20120614, end: 20120702

REACTIONS (1)
  - LOSS OF CONSCIOUSNESS [None]
